FAERS Safety Report 16263148 (Version 1)
Quarter: 2019Q2

REPORT INFORMATION
  Report Type: Spontaneous
  Country: US (occurrence: US)
  Receive Date: 20190502
  Receipt Date: 20190502
  Transmission Date: 20190711
  Serious: Yes (Hospitalization)
  Sender: FDA-Public Use
  Company Number: US-ACI HEALTHCARE LIMITED-2066519

PATIENT
  Age: 44 Year
  Sex: Female

DRUGS (8)
  1. POLYETHYLENE GLYCOL (POLYETHYLENE GLYCOL 3350) [Concomitant]
     Active Substance: POLYETHYLENE GLYCOL 3350
     Route: 048
  2. ONDANSETRON [Concomitant]
     Active Substance: ONDANSETRON
     Route: 048
  3. DIAZEPAM. [Concomitant]
     Active Substance: DIAZEPAM
     Route: 048
  4. CYCLOBENZAPRINE. [Concomitant]
     Active Substance: CYCLOBENZAPRINE
     Route: 048
  5. GABAPENTIN. [Suspect]
     Active Substance: GABAPENTIN
     Route: 048
  6. OXYCODONE/ACETAMINOPHEN [Concomitant]
     Active Substance: ACETAMINOPHEN\OXYCODONE HYDROCHLORIDE
     Route: 048
  7. HYDROCODONE/ACETAMINOPHEN [Concomitant]
     Active Substance: ACETAMINOPHEN\HYDROCODONE
     Route: 048
  8. DOCUSATE 100 [Concomitant]
     Route: 048

REACTIONS (1)
  - Cardiomyopathy [Recovering/Resolving]
